FAERS Safety Report 14727214 (Version 1)
Quarter: 2018Q2

REPORT INFORMATION
  Report Type: Spontaneous
  Country: US (occurrence: US)
  Receive Date: 20180406
  Receipt Date: 20180406
  Transmission Date: 20180711
  Serious: Yes (Other)
  Sender: FDA-Public Use
  Company Number: US-LPDUSPRD-20180499

PATIENT
  Age: 54 Year
  Sex: Male

DRUGS (2)
  1. ONDANSETRON INJECTION (4420-01) [Suspect]
     Active Substance: ONDANSETRON
     Dosage: SINGLE DOSE OF 4 MG
     Route: 042
  2. ZIPRASIDONE. [Suspect]
     Active Substance: ZIPRASIDONE
     Dosage: UNKNOWN
     Route: 065

REACTIONS (3)
  - Drug interaction [Unknown]
  - Contraindicated product administered [Unknown]
  - Electrocardiogram QT prolonged [Unknown]
